FAERS Safety Report 20357059 (Version 3)
Quarter: 2022Q1

REPORT INFORMATION
  Report Type: Spontaneous
  Country: US (occurrence: US)
  Receive Date: 20220120
  Receipt Date: 20220205
  Transmission Date: 20220423
  Serious: No
  Sender: FDA-Public Use
  Company Number: US-SANOFI-00933516

PATIENT
  Age: 22 Year
  Sex: Female

DRUGS (3)
  1. DUPIXENT [Suspect]
     Active Substance: DUPILUMAB
     Indication: Eczema
     Dosage: 300 MG, QOW
  2. COVID-19 VACCINE NOS [Suspect]
     Active Substance: COVID-19 VACCINE NOS
  3. XIFAXAN [Concomitant]
     Active Substance: RIFAXIMIN

REACTIONS (9)
  - Injection site inflammation [Unknown]
  - Pruritus [Unknown]
  - Injection site nodule [Unknown]
  - Skin discolouration [Unknown]
  - Gastrointestinal bacterial overgrowth [Unknown]
  - Acne [Unknown]
  - Injection site swelling [Unknown]
  - Injection site pain [Unknown]
  - Injection site reaction [Unknown]
